FAERS Safety Report 9517163 (Version 2)
Quarter: 2013Q3

REPORT INFORMATION
  Report Type: Spontaneous
  Country: GB (occurrence: GB)
  Receive Date: 20130911
  Receipt Date: 20130917
  Transmission Date: 20140515
  Serious: Yes (Hospitalization)
  Sender: FDA-Public Use
  Company Number: GB-PFIZER INC-2013258045

PATIENT
  Age: 29 Year
  Sex: Male

DRUGS (2)
  1. PREGABALIN [Suspect]
     Indication: EPILEPSY
     Dosage: 11.5 G, SINGLE
     Route: 048
  2. LAMOTRIGINE [Suspect]
     Indication: EPILEPSY
     Dosage: 32 G, SINGLE
     Route: 048

REACTIONS (9)
  - Intentional overdose [Unknown]
  - Suicide attempt [Unknown]
  - Agitation [Unknown]
  - Coma [Unknown]
  - Sinus tachycardia [Unknown]
  - Urinary retention [Unknown]
  - Convulsion [Recovering/Resolving]
  - Acute respiratory distress syndrome [Recovering/Resolving]
  - Bone marrow failure [Unknown]
